FAERS Safety Report 14564065 (Version 1)
Quarter: 2018Q1

REPORT INFORMATION
  Report Type: Spontaneous
  Country: GB (occurrence: GB)
  Receive Date: 20180222
  Receipt Date: 20180222
  Transmission Date: 20180509
  Serious: Yes (Other)
  Sender: FDA-Public Use
  Company Number: GB-PFIZER INC-2018070006

PATIENT
  Sex: Female

DRUGS (1)
  1. XANAX [Suspect]
     Active Substance: ALPRAZOLAM

REACTIONS (15)
  - Drug dependence [Unknown]
  - Aggression [Unknown]
  - Withdrawal syndrome [Unknown]
  - Mental disorder [Unknown]
  - Prescription drug used without a prescription [Unknown]
  - Somnolence [Unknown]
  - Vomiting [Unknown]
  - Depression suicidal [Unknown]
  - Insomnia [Unknown]
  - Indifference [Unknown]
  - Counterfeit product administered [Unknown]
  - Impulsive behaviour [Unknown]
  - Feeling abnormal [Unknown]
  - Flat affect [Unknown]
  - Drug abuse [Unknown]
